FAERS Safety Report 8543458-9 (Version None)
Quarter: 2012Q2

REPORT INFORMATION
  Report Type: 
  Country: None (occurrence: None)
  Receive Date: 20120412
  Receipt Date: 20090403
  Transmission Date: 20120825
  Serious: Yes (Other)
  Sender: FDA-Public Use
  Company Number: PHEH2006US14280

PATIENT
  Age: 64 Year
  Sex: Female
  Weight: 78 kg

DRUGS (7)
  1. NEUTONIN (GABAPENTIN) [Concomitant]
  2. AREDIA [Suspect]
     Dosage: 6
     Route: 041
  3. ZOMETA [Suspect]
     Dosage: 4 MG
  4. DECADRON [Concomitant]
  5. ZOLOFT [Concomitant]
  6. TAXOTERE [Concomitant]
  7. NEULASTA [Concomitant]

REACTIONS (11)
  - DECREASED INTEREST [None]
  - OSTEONECROSIS [None]
  - WEIGHT DECREASED [None]
  - METASTASES TO CENTRAL NERVOUS SYSTEM [None]
  - TOOTH FRACTURE [None]
  - OEDEMA [None]
  - INJURY [None]
  - PAIN [None]
  - GENERAL PHYSICAL HEALTH DETERIORATION [None]
  - FLUID RETENTION [None]
  - PAIN IN JAW [None]
